FAERS Safety Report 9264328 (Version 15)
Quarter: 2014Q1

REPORT INFORMATION
  Report Type: Report from Study
  Country: NL (occurrence: NL)
  Receive Date: 20130430
  Receipt Date: 20140321
  Transmission Date: 20141002
  Serious: Yes (Hospitalization)
  Sender: FDA-Public Use
  Company Number: NL-JNJFOC-20130417318

PATIENT
  Age: 51 Year
  Sex: Female
  Weight: 64 kg

DRUGS (11)
  1. USTEKINUMAB [Suspect]
     Indication: CROHN^S DISEASE
     Route: 058
     Dates: start: 20130408
  2. USTEKINUMAB [Suspect]
     Indication: CROHN^S DISEASE
     Route: 058
     Dates: start: 20121227
  3. SUPRADYN [Concomitant]
     Indication: CROHN^S DISEASE
     Route: 048
     Dates: start: 20130221
  4. ZOFRAN [Concomitant]
     Indication: CROHN^S DISEASE
     Route: 048
     Dates: start: 20130321
  5. PARACETAMOL [Concomitant]
     Indication: CROHN^S DISEASE
     Route: 048
     Dates: start: 20121211
  6. IMODIUM [Concomitant]
     Indication: CROHN^S DISEASE
     Route: 048
  7. TEMAZEPAM [Concomitant]
     Indication: INSOMNIA
     Route: 048
  8. PREDNISONE [Concomitant]
     Indication: CROHN^S DISEASE
     Route: 048
     Dates: start: 20120924
  9. LISINOPRIL [Concomitant]
     Indication: PROTEINURIA
     Route: 048
     Dates: start: 20080530
  10. TRAMAL [Concomitant]
     Indication: CROHN^S DISEASE
     Route: 048
     Dates: start: 20121120
  11. SINTROM [Concomitant]

REACTIONS (1)
  - Crohn^s disease [Recovered/Resolved]
